FAERS Safety Report 12927281 (Version 1)
Quarter: 2016Q4

REPORT INFORMATION
  Report Type: Spontaneous
  Country: US (occurrence: US)
  Receive Date: 20161109
  Receipt Date: 20161109
  Transmission Date: 20170207
  Serious: No
  Sender: FDA-Public Use
  Company Number: None

PATIENT
  Age: 22 Year
  Sex: Male

DRUGS (1)
  1. SIROLIMUS TAB 2MG [Suspect]
     Active Substance: SIROLIMUS

REACTIONS (1)
  - Nausea [None]

NARRATIVE: CASE EVENT DATE: 20161104
